FAERS Safety Report 5159241-0 (Version None)
Quarter: 2006Q4

REPORT INFORMATION
  Report Type: 
  Country: None (occurrence: None)
  Receive Date: 20061120
  Receipt Date: 20061110
  Transmission Date: 20070319
  Serious: Yes (Hospitalization)
  Sender: FDA-Public Use
  Company Number: 2006AL003547

PATIENT
  Age: 73 Year
  Sex: Male

DRUGS (4)
  1. IBUPROFEN [Suspect]
     Dosage: 400 MG; TID; PO
     Route: 048
     Dates: start: 20061005, end: 20061017
  2. DEXAMETHASONE [Concomitant]
  3. FUROSEMIDE [Concomitant]
  4. MOVICOL [Concomitant]

REACTIONS (1)
  - LARGE INTESTINE PERFORATION [None]
